FAERS Safety Report 12590125 (Version 4)
Quarter: 2016Q3

REPORT INFORMATION
  Report Type: Spontaneous
  Country: US (occurrence: US)
  Receive Date: 20160725
  Receipt Date: 20160829
  Transmission Date: 20161109
  Serious: Yes (Hospitalization, Other)
  Sender: FDA-Public Use
  Company Number: US-GLAXOSMITHKLINE-US2016GSK106137

PATIENT
  Sex: Male

DRUGS (14)
  1. ADVAIR DISKUS [Suspect]
     Active Substance: FLUTICASONE PROPIONATE\SALMETEROL XINAFOATE
     Indication: ASTHMA
     Dosage: 1 PUFF(S), BID
     Route: 055
     Dates: start: 2015
  2. MAG-OX [Concomitant]
     Active Substance: MAGNESIUM OXIDE
  3. CARVEDILOL. [Concomitant]
     Active Substance: CARVEDILOL
  4. VALSARTAN. [Concomitant]
     Active Substance: VALSARTAN
  5. FERREX [Concomitant]
  6. BACTRIM [Concomitant]
     Active Substance: SULFAMETHOXAZOLE\TRIMETHOPRIM
  7. PROGRAF [Concomitant]
     Active Substance: TACROLIMUS\TACROLIMUS ANHYDROUS
  8. PREDNISONE. [Concomitant]
     Active Substance: PREDNISONE
  9. NOXAFIL [Concomitant]
     Active Substance: POSACONAZOLE
  10. OMEPRAZOLE. [Concomitant]
     Active Substance: OMEPRAZOLE
  11. CALCIUM [Concomitant]
     Active Substance: CALCIUM
  12. AMLODIPINE [Concomitant]
     Active Substance: AMLODIPINE BESYLATE
  13. AMOXICILLIN. [Concomitant]
     Active Substance: AMOXICILLIN
  14. ALBUTEROL NEBULIZER [Concomitant]
     Active Substance: ALBUTEROL

REACTIONS (5)
  - Pneumonia [Recovered/Resolved]
  - Dyspnoea [Recovered/Resolved]
  - Skin neoplasm excision [Unknown]
  - Loss of consciousness [Recovered/Resolved]
  - Diverticulitis [Recovered/Resolved]

NARRATIVE: CASE EVENT DATE: 2015
